FAERS Safety Report 25680640 (Version 1)
Quarter: 2025Q3

REPORT INFORMATION
  Report Type: Spontaneous
  Country: US (occurrence: None)
  Receive Date: 20250813
  Receipt Date: 20250813
  Transmission Date: 20251021
  Serious: Yes (Other)
  Sender: FDA-CTU
  Company Number: None

PATIENT
  Age: 74 Year
  Sex: Male

DRUGS (7)
  1. TEMOZOLOMIDE [Suspect]
     Active Substance: TEMOZOLOMIDE
     Indication: Brain neoplasm malignant
     Dosage: FREQUENCY : DAILY;?
     Route: 048
     Dates: start: 20250418
  2. INSULIN LISPRO [Concomitant]
     Active Substance: INSULIN LISPRO
  3. MEGESTROL [Concomitant]
     Active Substance: MEGESTROL
  4. LANTUS [Concomitant]
     Active Substance: INSULIN GLARGINE
  5. PREDNISONE [Concomitant]
     Active Substance: PREDNISONE
  6. ATORVASTATIN [Concomitant]
     Active Substance: ATORVASTATIN
  7. DEXAMETHASONE [Concomitant]
     Active Substance: DEXAMETHASONE

REACTIONS (1)
  - Hospice care [None]
